FAERS Safety Report 13848412 (Version 1)
Quarter: 2017Q3

REPORT INFORMATION
  Report Type: Spontaneous
  Country: US (occurrence: US)
  Receive Date: 20170809
  Receipt Date: 20170809
  Transmission Date: 20171127
  Serious: No
  Sender: FDA-Public Use
  Company Number: None

PATIENT
  Age: 32 Year
  Sex: Male

DRUGS (1)
  1. SUTENT [Suspect]
     Active Substance: SUNITINIB MALATE
     Dosage: 50MG DAILY FOR 4 WEEKS ON, 2 WEEKS OFF ORAL
     Route: 048
     Dates: start: 20170515, end: 20170615

REACTIONS (2)
  - Colitis [None]
  - Pain [None]

NARRATIVE: CASE EVENT DATE: 20170615
